FAERS Safety Report 10891015 (Version 4)
Quarter: 2015Q2

REPORT INFORMATION
  Report Type: Report from Study
  Country: US (occurrence: US)
  Receive Date: 20150305
  Receipt Date: 20150603
  Transmission Date: 20150821
  Serious: Yes (Hospitalization, Other)
  Sender: FDA-Public Use
  Company Number: US-ASTRAZENECA-2014SE09849

PATIENT
  Age: 805 Month
  Sex: Female
  Weight: 63.5 kg

DRUGS (14)
  1. PRILOSEC [Suspect]
     Active Substance: OMEPRAZOLE MAGNESIUM
     Dosage: 45 MIN BEFORE BREAKFAST OR DINNER, 20MG DAILY
     Route: 048
  2. CENTRUM SILVER FOR WOMAN OVER 50 [Concomitant]
     Indication: SUPPLEMENTATION THERAPY
     Dosage: NOT REPORTED QOD
     Route: 048
  3. VITAMIN D3 [Concomitant]
     Active Substance: CHOLECALCIFEROL
     Indication: SUPPLEMENTATION THERAPY
     Dosage: 1000 MG. QOD
     Route: 048
  4. BABY ASPIRIN [Concomitant]
     Active Substance: ASPIRIN
     Indication: CARDIAC DISORDER
     Route: 048
  5. HYDROCHLOROTHIAZIDE. [Concomitant]
     Active Substance: HYDROCHLOROTHIAZIDE
     Indication: WEIGHT CONTROL
     Route: 048
  6. HYDROCHLOROTHIAZIDE. [Concomitant]
     Active Substance: HYDROCHLOROTHIAZIDE
     Indication: CARDIAC DISORDER
     Route: 048
  7. HYDROCHLOROTHIAZIDE. [Concomitant]
     Active Substance: HYDROCHLOROTHIAZIDE
     Indication: HYPERTENSION
     Route: 048
  8. VITAMIN B12 [Concomitant]
     Active Substance: CYANOCOBALAMIN
     Indication: SUPPLEMENTATION THERAPY
     Dosage: 1000 MG. TIWK
     Route: 048
  9. MULTIVITAMINS [Concomitant]
     Active Substance: VITAMINS
  10. CRESTOR [Suspect]
     Active Substance: ROSUVASTATIN CALCIUM
     Indication: BLOOD CHOLESTEROL ABNORMAL
     Route: 048
     Dates: start: 2009, end: 201502
  11. CRESTOR [Suspect]
     Active Substance: ROSUVASTATIN CALCIUM
     Indication: TYPE IIA HYPERLIPIDAEMIA
     Route: 048
     Dates: start: 2009, end: 201502
  12. CITROCAL [Concomitant]
     Indication: SUPPLEMENTATION THERAPY
     Dosage: NOT REPORTED QOD
     Route: 048
  13. LEXAPRO [Concomitant]
     Active Substance: ESCITALOPRAM OXALATE
     Indication: DEPRESSION
     Route: 048
  14. LIPITOR [Suspect]
     Active Substance: ATORVASTATIN CALCIUM
     Route: 048

REACTIONS (10)
  - Weight decreased [Unknown]
  - Fibula fracture [Recovered/Resolved with Sequelae]
  - Body height decreased [Unknown]
  - Weight bearing difficulty [Unknown]
  - Joint injury [Recovered/Resolved with Sequelae]
  - Road traffic accident [Unknown]
  - Tibia fracture [Recovered/Resolved with Sequelae]
  - Fatigue [Unknown]
  - Drug dose omission [Not Recovered/Not Resolved]
  - Lower limb fracture [Unknown]

NARRATIVE: CASE EVENT DATE: 200912
